FAERS Safety Report 10944052 (Version 3)
Quarter: 2015Q2

REPORT INFORMATION
  Report Type: Spontaneous
  Country: US (occurrence: US)
  Receive Date: 20150323
  Receipt Date: 20150515
  Transmission Date: 20150821
  Serious: Yes (Death, Other)
  Sender: FDA-Public Use
  Company Number: US-AMGEN-USASP2015025562

PATIENT
  Age: 67 Year
  Sex: Female
  Weight: 31.3 kg

DRUGS (6)
  1. CALCIUM +VIT D [Concomitant]
     Active Substance: CALCIUM\VITAMIN D
     Dosage: 600-200MG , QD (WITH FOOD)
     Route: 048
  2. ALEVE [Concomitant]
     Active Substance: NAPROXEN SODIUM
     Dosage: 220 MG, Q12H
  3. FORTEO [Concomitant]
     Active Substance: TERIPARATIDE
     Dosage: 0.08 ML, QD
  4. MULTI VITAMIN [Concomitant]
     Active Substance: VITAMINS
     Dosage: UNK UNK, AS NECESSARY
  5. ACTONEL [Concomitant]
     Active Substance: RISEDRONATE SODIUM
     Dosage: 150 MG, QMO
     Route: 048
  6. PROLIA [Suspect]
     Active Substance: DENOSUMAB
     Indication: OSTEOPOROSIS POSTMENOPAUSAL
     Dosage: 60 MG/ML, AS NECESSARY
     Route: 058

REACTIONS (23)
  - Somnolence [Unknown]
  - Hospice care [Unknown]
  - Pruritus [Unknown]
  - Anxiety [Unknown]
  - Back pain [Unknown]
  - Arthralgia [Unknown]
  - Asthenia [Unknown]
  - Activities of daily living impaired [Unknown]
  - Body mass index decreased [Unknown]
  - Sciatica [Unknown]
  - Death [Fatal]
  - Fall [Unknown]
  - Underweight [Unknown]
  - Insomnia [Unknown]
  - Femur fracture [Unknown]
  - Cachexia [Unknown]
  - Marasmus [Unknown]
  - Hyperkeratosis [Unknown]
  - Fatigue [Unknown]
  - Dermatitis contact [Unknown]
  - Depression [Unknown]
  - Malnutrition [Unknown]
  - Pain in extremity [Unknown]

NARRATIVE: CASE EVENT DATE: 20150121
